FAERS Safety Report 20667275 (Version 5)
Quarter: 2022Q2

REPORT INFORMATION
  Report Type: Spontaneous
  Country: PL (occurrence: PL)
  Receive Date: 20220404
  Receipt Date: 20220428
  Transmission Date: 20220721
  Serious: No
  Sender: FDA-Public Use
  Company Number: PL-AUROBINDO-AUR-APL-2022-008582

PATIENT
  Age: 11 Year
  Sex: Male

DRUGS (3)
  1. MONTELUKAST SODIUM [Suspect]
     Active Substance: MONTELUKAST SODIUM
     Indication: Urticaria
     Dosage: UNK
  2. DEXAMETHASONE [Concomitant]
     Active Substance: DEXAMETHASONE
     Dosage: 8 MILLIGRAM
  3. BILASTINE [Concomitant]
     Active Substance: BILASTINE
     Dosage: UNK

REACTIONS (1)
  - Product use in unapproved indication [Unknown]
